FAERS Safety Report 7631005-5 (Version None)
Quarter: 2011Q3

REPORT INFORMATION
  Report Type: 
  Country: None (occurrence: None)
  Receive Date: 20110725
  Receipt Date: 20100212
  Transmission Date: 20111222
  Serious: No
  Sender: FDA-Public Use
  Company Number: 2010BI005210

PATIENT
  Age: 42 Year
  Sex: Female

DRUGS (1)
  1. TYSABRI [Suspect]
     Indication: MULTIPLE SCLEROSIS
     Route: 042
     Dates: start: 20070410

REACTIONS (1)
  - VISUAL IMPAIRMENT [None]
